FAERS Safety Report 7641466-3 (Version None)
Quarter: 2011Q3

REPORT INFORMATION
  Report Type: 
  Country: None (occurrence: None)
  Receive Date: 20110728
  Receipt Date: 20110719
  Transmission Date: 20111222
  Serious: Yes (Hospitalization)
  Sender: FDA-Public Use
  Company Number: KR-AMGEN-KORSP2011037516

PATIENT
  Age: 44 Year
  Sex: Male

DRUGS (7)
  1. KETOROLAC TROMETHAMINE [Concomitant]
     Dosage: UNCERTAINTY
     Route: 065
  2. CEFIXIME [Concomitant]
     Dosage: UNCERTAINTY
     Route: 065
     Dates: start: 20110629, end: 20110703
  3. CINACALCET HYDROCHLORIDE [Suspect]
     Route: 048
     Dates: start: 20110613, end: 20110708
  4. KETOROLAC TROMETHAMINE [Concomitant]
     Dosage: UNCERTAINTY
     Route: 065
     Dates: start: 20110704, end: 20110709
  5. CEFACLOR [Concomitant]
     Dosage: UNCERTAINTY
     Route: 065
     Dates: start: 20110704, end: 20110709
  6. KETOROLAC TROMETHAMINE [Concomitant]
     Dosage: UNCERTAINTY
     Route: 065
     Dates: start: 20110629, end: 20110630
  7. CINACALCET HYDROCHLORIDE [Suspect]
     Indication: HYPERPARATHYROIDISM
     Route: 048
     Dates: start: 20110415, end: 20110612

REACTIONS (6)
  - NAUSEA [None]
  - EATING DISORDER [None]
  - DECREASED APPETITE [None]
  - ANAEMIA [None]
  - OSTEOTOMY [None]
  - DYSPNOEA [None]
